FAERS Safety Report 6702105-9 (Version None)
Quarter: 2010Q2

REPORT INFORMATION
  Report Type: 
  Country: None (occurrence: None)
  Receive Date: 20100429
  Receipt Date: 20100318
  Transmission Date: 20101027
  Serious: No
  Sender: FDA-Public Use
  Company Number: US-BAYER-200943538NA

PATIENT
  Age: 50 Year
  Sex: Male

DRUGS (12)
  1. NEXAVAR [Suspect]
     Indication: HEPATIC CANCER METASTATIC
     Dosage: UNIT DOSE: 200 MG
     Route: 048
     Dates: start: 20091001
  2. NEXAVAR [Suspect]
     Dosage: UNIT DOSE: 200 MG
     Route: 048
  3. NEXAVAR [Suspect]
     Dosage: UNIT DOSE: 200 MG
     Route: 048
  4. NEXAVAR [Suspect]
     Dosage: TOTAL DAILY DOSE: 200 MG  UNIT DOSE: 200 MG
     Route: 048
  5. NEXAVAR [Suspect]
     Dosage: TOTAL DAILY DOSE: 800 MG  UNIT DOSE: 200 MG
     Route: 048
     Dates: start: 20091120
  6. NEXAVAR [Suspect]
     Dosage: TOTAL DAILY DOSE: 800 MG  UNIT DOSE: 200 MG
     Route: 048
     Dates: start: 20091130, end: 20100112
  7. NEXAVAR [Suspect]
     Dosage: TOTAL DAILY DOSE: 800 MG  UNIT DOSE: 200 MG
     Route: 048
  8. PROGRAF [Concomitant]
  9. PROGRAF [Concomitant]
     Dosage: DOSE DOUBLED RECENTLY
  10. TYLENOL SINUS [Concomitant]
     Indication: SINUS DISORDER
  11. ANTI-REJECTION DRUGS [Concomitant]
  12. ANTI-REJECTION DRUGS [Concomitant]
     Dosage: INCREASED DOSE

REACTIONS (10)
  - ALOPECIA [None]
  - DIARRHOEA [None]
  - DRY SKIN [None]
  - FATIGUE [None]
  - GLOSSODYNIA [None]
  - HEADACHE [None]
  - HEPATIC ENZYME INCREASED [None]
  - PAIN IN EXTREMITY [None]
  - PAIN OF SKIN [None]
  - PRURITUS [None]
